FAERS Safety Report 4446132-3 (Version None)
Quarter: 2004Q3

REPORT INFORMATION
  Report Type: 
  Country: None (occurrence: None)
  Receive Date: 20040907
  Receipt Date: 20040902
  Transmission Date: 20050211
  Serious: Yes (Death, Hospitalization)
  Sender: FDA-Public Use
  Company Number: BW-BRISTOL-MYERS SQUIBB COMPANY-12692034

PATIENT
  Age: 6 Year
  Sex: Female
  Weight: 18 kg

DRUGS (3)
  1. STAVUDINE [Suspect]
     Indication: HIV INFECTION
     Dates: start: 20040402
  2. LAMIVUDINE [Suspect]
     Indication: HIV INFECTION
     Dates: start: 20040402
  3. KALETRA [Suspect]
     Indication: HIV INFECTION
     Dates: start: 20040402

REACTIONS (3)
  - ACUTE ABDOMEN [None]
  - MENINGITIS [None]
  - PANCREATITIS [None]
